FAERS Safety Report 5346724-3 (Version None)
Quarter: 2007Q2

REPORT INFORMATION
  Report Type: 
  Country: None (occurrence: None)
  Receive Date: 20070604
  Receipt Date: 20070517
  Transmission Date: 20071010
  Serious: Yes (Death)
  Sender: FDA-Public Use
  Company Number: DSA_27313_2005

PATIENT
  Age: 17 Year
  Sex: Female

DRUGS (4)
  1. DILTIAZEM [Suspect]
  2. ZOPICLONE (ZOPICLONE) [Suspect]
  3. ACETAMINOPHEN [Suspect]
  4. MIRTAZAPINE [Suspect]

REACTIONS (2)
  - COMPLETED SUICIDE [None]
  - MULTIPLE DRUG OVERDOSE INTENTIONAL [None]
